FAERS Safety Report 19460918 (Version 6)
Quarter: 2021Q3

REPORT INFORMATION
  Report Type: Spontaneous
  Country: AR (occurrence: AR)
  Receive Date: 20210625
  Receipt Date: 20210913
  Transmission Date: 20211014
  Serious: Yes (Other)
  Sender: FDA-Public Use
  Company Number: AR-MYLANLABS-2021M1033287

PATIENT
  Age: 52 Year
  Sex: Male

DRUGS (3)
  1. LAPENAX [Suspect]
     Active Substance: CLOZAPINE
     Indication: TREATMENT FAILURE
     Dosage: 200 MILLIGRAM, QD
     Dates: start: 20201120, end: 20210604
  2. LAPENAX [Suspect]
     Active Substance: CLOZAPINE
     Dosage: 100 MILLIGRAM, QD
  3. LAPENAX [Suspect]
     Active Substance: CLOZAPINE
     Dosage: 200 MILLIGRAM, QD

REACTIONS (9)
  - Leukopenia [Recovered/Resolved]
  - Leukocytosis [Recovered/Resolved]
  - Neutropenia [Recovered/Resolved]
  - Neutrophil count increased [Recovered/Resolved]
  - COVID-19 [Unknown]
  - Monocyte count increased [Unknown]
  - Red blood cell count decreased [Recovered/Resolved]
  - Haematocrit decreased [Unknown]
  - Haemoglobin decreased [Unknown]

NARRATIVE: CASE EVENT DATE: 20210604
